FAERS Safety Report 7313323-3 (Version None)
Quarter: 2011Q1

REPORT INFORMATION
  Report Type: 
  Country: None (occurrence: None)
  Receive Date: 20110225
  Receipt Date: 20101103
  Transmission Date: 20110831
  Serious: No
  Sender: FDA-Public Use
  Company Number: US-MYLANLABS-2010S1020381

PATIENT
  Age: 63 Year
  Sex: Male

DRUGS (4)
  1. LOVASTATIN [Concomitant]
  2. DILANTIN [Concomitant]
  3. GLIPIZIDE [Concomitant]
  4. METFORMIN HCL [Suspect]
     Indication: BLOOD GLUCOSE
     Route: 048
     Dates: start: 20100901

REACTIONS (1)
  - DIARRHOEA [None]
